FAERS Safety Report 16764149 (Version 2)
Quarter: 2019Q3

REPORT INFORMATION
  Report Type: Spontaneous
  Country: MX (occurrence: MX)
  Receive Date: 20190902
  Receipt Date: 20190923
  Transmission Date: 20191005
  Serious: Yes (Hospitalization, Other)
  Sender: FDA-Public Use
  Company Number: MX-009507513-1908MEX012953

PATIENT
  Age: 24 Year
  Sex: Female

DRUGS (1)
  1. IMPLANON [Suspect]
     Active Substance: ETONOGESTREL
     Dosage: 1 IMPLANT
     Route: 059
     Dates: start: 20180331

REACTIONS (5)
  - Pregnancy with implant contraceptive [Recovered/Resolved]
  - Retained placenta or membranes [Unknown]
  - Unintended pregnancy [Recovered/Resolved]
  - Urethral perforation [Unknown]
  - Menstruation irregular [Recovered/Resolved]
